FAERS Safety Report 10076558 (Version 1)
Quarter: 2014Q2

REPORT INFORMATION
  Report Type: Spontaneous
  Country: DE (occurrence: DE)
  Receive Date: 20140414
  Receipt Date: 20140414
  Transmission Date: 20141212
  Serious: Yes (Death)
  Sender: FDA-Public Use
  Company Number: DE-NAPPMUNDI-DEU-2014-0014124

PATIENT
  Age: 80 Year
  Sex: Female

DRUGS (1)
  1. PALLADON INJEKT [Suspect]
     Indication: PAIN
     Dosage: 164 MG, DAILY
     Route: 042

REACTIONS (2)
  - Hyperaesthesia [Unknown]
  - Death [Fatal]
